FAERS Safety Report 7884823-2 (Version None)
Quarter: 2011Q4

REPORT INFORMATION
  Report Type: 
  Country: None (occurrence: None)
  Receive Date: 20111102
  Receipt Date: 20111026
  Transmission Date: 20120403
  Serious: Yes (Other)
  Sender: FDA-Public Use
  Company Number: PHEH2011US08081

PATIENT
  Sex: Female

DRUGS (1)
  1. RECLAST [Suspect]
     Dosage: 5 MG, YEARLY
     Route: 042

REACTIONS (3)
  - HYPERKALAEMIA [None]
  - METABOLIC ACIDOSIS [None]
  - AZOTAEMIA [None]
